FAERS Safety Report 12891693 (Version 1)
Quarter: 2016Q4

REPORT INFORMATION
  Report Type: Spontaneous
  Country: US (occurrence: US)
  Receive Date: 20161028
  Receipt Date: 20161028
  Transmission Date: 20170207
  Serious: No
  Sender: FDA-Public Use
  Company Number: US-TAIHO ONCOLOGY INC-EU-2016-00117

PATIENT
  Age: 74 Year
  Sex: Male
  Weight: 58.11 kg

DRUGS (13)
  1. SEACOR [Concomitant]
     Active Substance: OMEGA-3 FATTY ACIDS
     Indication: SUPPLEMENTATION THERAPY
     Dosage: NI
  2. LACTOBACILLUS ACIDOPHILUS [Concomitant]
     Active Substance: LACTOBACILLUS ACIDOPHILUS
     Dosage: NI
  3. LONSURF [Suspect]
     Active Substance: TIPIRACIL HYDROCHLORIDE\TRIFLURIDINE
     Indication: COLON CANCER
     Route: 048
     Dates: start: 20151230
  4. FOENICULUM VULGARE [Concomitant]
     Active Substance: FENNEL SEED
     Dosage: NI
  5. PROTEASE [Concomitant]
     Active Substance: PROTEASE
     Dosage: NI
  6. MAGNESIUM [Concomitant]
     Active Substance: MAGNESIUM
     Indication: FUNCTIONAL GASTROINTESTINAL DISORDER
     Dosage: NI
  7. CHLORELLA VULGARIS [Concomitant]
     Active Substance: CHLORELLA VULGARIS
     Dosage: NI
  8. ULMUS RUBRA [Concomitant]
     Dosage: NI
  9. COLECALCIFEROL [Concomitant]
     Active Substance: CHOLECALCIFEROL
     Dosage: NI
  10. OMEPRAZOLE. [Concomitant]
     Active Substance: OMEPRAZOLE
     Indication: DYSPEPSIA
     Dosage: NI
  11. SILVER COLLOIDAL [Concomitant]
     Active Substance: SILVER
     Dosage: NI
  12. CANNABIDIOL [Concomitant]
     Active Substance: CANNABIDIOL
     Dosage: NI
  13. CARNITYL [Concomitant]
     Dosage: NI

REACTIONS (2)
  - Cognitive disorder [Recovered/Resolved]
  - Fatigue [Not Recovered/Not Resolved]

NARRATIVE: CASE EVENT DATE: 201601
